FAERS Safety Report 10512690 (Version 1)
Quarter: 2014Q4

REPORT INFORMATION
  Report Type: Spontaneous
  Country: DE (occurrence: DE)
  Receive Date: 20141012
  Receipt Date: 20141012
  Transmission Date: 20150528
  Serious: Yes (Other)
  Sender: FDA-Public Use
  Company Number: DE-MYLANLABS-2014M1006716

PATIENT

DRUGS (4)
  1. PREDNISOLONE. [Concomitant]
     Active Substance: PREDNISOLONE
     Indication: B-CELL LYMPHOMA
     Dosage: SYSTEMIC; 1MG PER KG BODY WEIGHT
     Route: 065
  2. RITUXIMAB [Suspect]
     Active Substance: RITUXIMAB
     Indication: B-CELL LYMPHOMA
     Dosage: INTRAVITREAL
     Route: 047
  3. METHOTREXATE [Suspect]
     Active Substance: METHOTREXATE
     Dosage: INTRAVITREAL; 0.4MG
     Route: 047
  4. PREDNISOLONE. [Concomitant]
     Active Substance: PREDNISOLONE
     Indication: B-CELL LYMPHOMA
     Dosage: PREDNISOLONE 1% EVERY 2 HOUR
     Route: 047

REACTIONS (1)
  - Glaucoma [Recovered/Resolved]
